FAERS Safety Report 20866468 (Version 3)
Quarter: 2022Q4

REPORT INFORMATION
  Report Type: Spontaneous
  Country: DK (occurrence: DK)
  Receive Date: 20220524
  Receipt Date: 20221213
  Transmission Date: 20230113
  Serious: Yes (Other)
  Sender: FDA-Public Use
  Company Number: DK-GLAXOSMITHKLINE-DK2022EME081573

PATIENT

DRUGS (5)
  1. TRELEGY ELLIPTA [Suspect]
     Active Substance: FLUTICASONE FUROATE\UMECLIDINIUM BROMIDE\VILANTEROL TRIFENATATE
     Indication: Asthma
     Dosage: 1 PUFF(S), QD, 95/55/22 ?G
     Route: 055
     Dates: start: 20220318, end: 20220516
  2. PREDNISOLONE [Suspect]
     Active Substance: PREDNISOLONE
     Indication: Product used for unknown indication
     Dosage: 2.5 MG
  3. PREDNISOLONE [Suspect]
     Active Substance: PREDNISOLONE
     Dosage: 5 MG, QD
  4. PREDNISOLONE [Suspect]
     Active Substance: PREDNISOLONE
     Dosage: 2.5 MG, QD
  5. SYMBICORT [Suspect]
     Active Substance: BUDESONIDE\FORMOTEROL FUMARATE DIHYDRATE
     Indication: Product used for unknown indication
     Dosage: UNK, 2 MORNING 2 EVENING

REACTIONS (16)
  - Poisoning [Unknown]
  - Osteoporosis [Unknown]
  - Skin fragility [Unknown]
  - Pulmonary function test decreased [Recovered/Resolved]
  - Sensory disturbance [Recovered/Resolved]
  - Dyspnoea [Recovered/Resolved]
  - Palpitations [Recovered/Resolved]
  - Nasopharyngitis [Unknown]
  - Lung disorder [Recovered/Resolved]
  - Discomfort [Recovered/Resolved]
  - Asthenia [Recovered/Resolved]
  - Condition aggravated [Unknown]
  - Loss of personal independence in daily activities [Recovered/Resolved]
  - Product prescribing issue [Unknown]
  - Drug ineffective for unapproved indication [Unknown]
  - Product use in unapproved indication [Unknown]
